FAERS Safety Report 8433309-5 (Version None)
Quarter: 2012Q2

REPORT INFORMATION
  Report Type: 
  Country: None (occurrence: None)
  Receive Date: 20120613
  Receipt Date: 20120530
  Transmission Date: 20120825
  Serious: Yes (Death, Hospitalization, Other)
  Sender: FDA-Public Use
  Company Number: US-CELGENE-163-21880-12042483

PATIENT
  Sex: Female

DRUGS (22)
  1. ENOXAPARIN [Concomitant]
     Dosage: 60 MILLIGRAM
     Route: 058
  2. PROAIR HFA [Concomitant]
     Dosage: 2 PUFFS
     Route: 065
  3. ERGOCALCIFEROL + ASCORBIC ACID + FOLIC ACID + THIAMINE HYDROCHLORIDE + [Concomitant]
     Dosage: 1 TABLET
     Route: 048
  4. REVLIMID [Suspect]
     Dosage: 15 MILLIGRAM
     Route: 048
     Dates: start: 20100201, end: 20100901
  5. PREDNISONE [Concomitant]
     Dosage: 5 MILLIGRAM
     Route: 048
  6. SODIUM CHLORIDE [Concomitant]
     Dosage: 2 SPRAYS
     Route: 045
  7. REVLIMID [Suspect]
     Dosage: 20 MILLIGRAM
     Route: 048
     Dates: start: 20110211, end: 20110620
  8. ASPIRIN [Concomitant]
     Dosage: 325 MILLIGRAM
     Route: 048
  9. BISOPROLOL [Concomitant]
     Dosage: .5 MILLIGRAM
     Route: 048
  10. POTASSIUM CHLORIDE [Concomitant]
     Dosage: 20 MILLIEQUIVALENTS
     Route: 048
  11. MAGNESIUM OXIDE [Concomitant]
     Dosage: 400 MILLIGRAM
     Route: 048
  12. POLYETHYLENE GLYCOL [Concomitant]
     Dosage: 17 GRAM
     Route: 048
  13. PROCHLORPERAZINE [Concomitant]
     Dosage: 10 MILLIGRAM
     Route: 048
  14. LACTOBACILLUS RHAMNOSUS [Concomitant]
     Dosage: 1 CAPSULE
     Route: 048
  15. ZOLPIDEM [Concomitant]
     Indication: INSOMNIA
     Dosage: 5 MILLIGRAM
     Route: 048
  16. PREGABALIN [Concomitant]
     Indication: NEUROPATHY PERIPHERAL
     Dosage: 50 MILLIGRAM
     Route: 048
  17. SPIRONOLACTONE [Concomitant]
     Dosage: .5 MILLIGRAM
     Route: 048
  18. LISINOPRIL [Concomitant]
     Indication: HYPERTENSION
     Dosage: 2.5 MILLIGRAM
     Route: 048
  19. OMEPRAZOLE [Concomitant]
     Dosage: 20 MILLIGRAM
     Route: 048
  20. SIMVASTATIN [Concomitant]
     Dosage: 40 MILLIGRAM
     Route: 048
  21. CITALOPRAM HYDROBROMIDE [Concomitant]
     Dosage: 10 MILLIGRAM
     Route: 048
  22. DEXAMETHASONE [Concomitant]
     Indication: MULTIPLE MYELOMA
     Route: 065
     Dates: start: 20100201

REACTIONS (4)
  - BLOOD IMMUNOGLOBULIN M INCREASED [None]
  - DEATH [None]
  - BONE MARROW FAILURE [None]
  - PNEUMONIA [None]
